FAERS Safety Report 23111688 (Version 1)
Quarter: 2023Q4

REPORT INFORMATION
  Report Type: Spontaneous
  Country: US (occurrence: None)
  Receive Date: 20231025
  Receipt Date: 20231025
  Transmission Date: 20240110
  Serious: No
  Sender: FDA-Public Use
  Company Number: None

PATIENT
  Age: 49 Year
  Sex: Female

DRUGS (2)
  1. TALTZ [Suspect]
     Active Substance: IXEKIZUMAB
     Indication: Psoriasis
     Dosage: OTHER FREQUENCY : ATWK12ASDIR;?
  2. TALTZ [Suspect]
     Active Substance: IXEKIZUMAB
     Indication: Paraesthesia

REACTIONS (2)
  - Bronchitis [None]
  - Therapy interrupted [None]
